FAERS Safety Report 22157468 (Version 1)
Quarter: 2023Q1

REPORT INFORMATION
  Report Type: Spontaneous
  Country: US (occurrence: US)
  Receive Date: 20230330
  Receipt Date: 20230330
  Transmission Date: 20230418
  Serious: No
  Sender: FDA-Public Use
  Company Number: US-TAKEDA-2023TUS031111

PATIENT
  Sex: Female
  Weight: 86 kg

DRUGS (12)
  1. DEXILANT [Suspect]
     Active Substance: DEXLANSOPRAZOLE
     Indication: Dyspepsia
     Dosage: 60 MILLIGRAM, QD
     Route: 065
  2. DEXILANT [Suspect]
     Active Substance: DEXLANSOPRAZOLE
     Indication: Gastrooesophageal reflux disease
  3. DEXLANSOPRAZOLE [Suspect]
     Active Substance: DEXLANSOPRAZOLE
     Indication: Gastrooesophageal reflux disease
     Dosage: UNK
     Route: 065
  4. DEXLANSOPRAZOLE [Suspect]
     Active Substance: DEXLANSOPRAZOLE
     Indication: Dyspepsia
  5. CALCIUM [Concomitant]
     Active Substance: CALCIUM
     Dosage: 1200 MILLIGRAM, QD
  6. FLUOXETINE [Concomitant]
     Active Substance: FLUOXETINE HYDROCHLORIDE
     Dosage: 10 MILLIGRAM, QD
  7. BUPROPION [Concomitant]
     Active Substance: BUPROPION
     Dosage: 150 MILLIGRAM, QD
  8. MAPAP ARTHRITIS PAIN [Concomitant]
     Active Substance: ACETAMINOPHEN
     Dosage: 650 MILLIGRAM, QD
  9. OLMESARTAN MEDOXOMIL AND HYDROCHLOROTHIAZIDE [Concomitant]
     Active Substance: HYDROCHLOROTHIAZIDE\OLMESARTAN MEDOXOMIL
     Indication: Blood pressure abnormal
     Dosage: UNK, QD
  10. ATORVASTATIN [Concomitant]
     Active Substance: ATORVASTATIN
     Indication: Blood cholesterol
     Dosage: 40 MILLIGRAM
  11. ASPIRIN [Concomitant]
     Active Substance: ASPIRIN
     Dosage: 80 MILLIGRAM, QD
  12. VITAMIN D [Concomitant]
     Active Substance: VITAMIN D NOS
     Dosage: 2000 MILLIGRAM, QD

REACTIONS (2)
  - Drug ineffective [Unknown]
  - Extra dose administered [Unknown]
